FAERS Safety Report 9339922 (Version 1)
Quarter: 2013Q2

REPORT INFORMATION
  Report Type: Spontaneous
  Country: US (occurrence: None)
  Receive Date: 20130607
  Receipt Date: 20130607
  Transmission Date: 20140414
  Serious: Yes (Other)
  Sender: FDA-Public Use
  Company Number: None

PATIENT
  Age: 63 Year
  Sex: Male
  Weight: 84.7 kg

DRUGS (2)
  1. CETUXIMAB [Suspect]
     Indication: COLON CANCER
     Route: 042
     Dates: start: 20120628, end: 20120628
  2. CETUXIMAB [Suspect]
     Indication: HEPATIC CANCER
     Route: 042
     Dates: start: 20120628, end: 20120628

REACTIONS (6)
  - Anaphylactic reaction [None]
  - Rash [None]
  - Nausea [None]
  - Vomiting [None]
  - Hypotension [None]
  - Dyspnoea [None]
